FAERS Safety Report 24164944 (Version 2)
Quarter: 2025Q2

REPORT INFORMATION
  Report Type: Spontaneous
  Country: US (occurrence: US)
  Receive Date: 20240802
  Receipt Date: 20250403
  Transmission Date: 20250716
  Serious: No
  Sender: ABBVIE
  Company Number: US-ABBVIE-5857466

PATIENT
  Age: 37 Year
  Sex: Female

DRUGS (1)
  1. LILETTA [Suspect]
     Active Substance: LEVONORGESTREL
     Indication: Product used for unknown indication
     Route: 015

REACTIONS (2)
  - Dyspareunia [Not Recovered/Not Resolved]
  - Embedded device [Unknown]

NARRATIVE: CASE EVENT DATE: 20240306
